FAERS Safety Report 8346842 (Version 2)
Quarter: 2014Q3

REPORT INFORMATION
  Report Type: Spontaneous
  Country: US (occurrence: None)
  Receive Date: 20080221
  Receipt Date: 20140909
  Transmission Date: 20150326
  Serious: Yes (Other)
  Sender: FDA-Public Use
  Company Number: 2007S1006883

PATIENT
  Age: 48 Year
  Sex: Female

DRUGS (4)
  1. NULYTELY [Suspect]
     Active Substance: POLYETHYLENE GLYCOL 3350\POTASSIUM CHLORIDE\SODIUM BICARBONATE\SODIUM CHLORIDE
     Indication: COLONOSCOPY
     Dosage: X1; PO
     Route: 048
     Dates: start: 20060208, end: 20060208
  2. LASIX [Concomitant]
     Active Substance: FUROSEMIDE
  3. AMOXYCILLIN [Concomitant]
     Active Substance: AMOXICILLIN
  4. PRILOSEC (OMEPRAZOLE) [Concomitant]
     Active Substance: OMEPRAZOLE MAGNESIUM

REACTIONS (18)
  - Hypertension [None]
  - Cough [None]
  - Vomiting [None]
  - Chest pain [None]
  - Syncope [None]
  - Hiccups [None]
  - Bronchitis [None]
  - Constipation [None]
  - Back pain [None]
  - Renal injury [None]
  - Sneezing [None]
  - Nausea [None]
  - Pain in extremity [None]
  - Renal failure [None]
  - Dyspnoea [None]
  - Headache [None]
  - Diarrhoea [None]
  - Dysuria [None]

NARRATIVE: CASE EVENT DATE: 2006
